FAERS Safety Report 9380591 (Version 2)
Quarter: 2013Q3

REPORT INFORMATION
  Report Type: Spontaneous
  Country: US (occurrence: US)
  Receive Date: 20130702
  Receipt Date: 20130926
  Transmission Date: 20140515
  Serious: No
  Sender: FDA-Public Use
  Company Number: US-PFIZER INC-2013193428

PATIENT
  Age: 52 Year
  Sex: Male
  Weight: 75.28 kg

DRUGS (6)
  1. XANAX [Suspect]
     Indication: ANXIETY
     Dosage: UNK
  2. NEURONTIN [Suspect]
     Indication: NERVE INJURY
     Dosage: 300 MG, 3X/DAY
     Dates: start: 20130612, end: 20130612
  3. CYMBALTA [Concomitant]
     Indication: BACK PAIN
     Dosage: UNK
  4. PROTONIX [Concomitant]
     Indication: ABDOMINAL PAIN UPPER
     Dosage: 40 MG, UNK
  5. LYRICA [Concomitant]
     Indication: NERVE INJURY
     Dosage: 300 MG, 2X/DAY
     Dates: start: 2007
  6. TRAMADOL [Concomitant]
     Dosage: 100 MG, 4X/DAY

REACTIONS (4)
  - Anxiety [Unknown]
  - Headache [Unknown]
  - Nausea [Unknown]
  - Off label use [Recovered/Resolved]
